FAERS Safety Report 6738876-5 (Version None)
Quarter: 2010Q2

REPORT INFORMATION
  Report Type: 
  Country: None (occurrence: None)
  Receive Date: 20100520
  Receipt Date: 20100510
  Transmission Date: 20101027
  Serious: Yes (Life-Threatening)
  Sender: FDA-Public Use
  Company Number: DSA_43040_2010

PATIENT
  Sex: Female

DRUGS (4)
  1. ELONTRIL           (ELONTRIL - BUPROPION HYDROCHLORIDE) (NOT SPECIFIED [Suspect]
     Indication: DEPRESSION
     Dosage: 150 MG DAILY ORAL, 300 MG DAILY ORAL
     Route: 048
     Dates: start: 20090129, end: 20090306
  2. ELONTRIL           (ELONTRIL - BUPROPION HYDROCHLORIDE) (NOT SPECIFIED [Suspect]
     Indication: DEPRESSION
     Dosage: 150 MG DAILY ORAL, 300 MG DAILY ORAL
     Route: 048
     Dates: start: 20090307, end: 20090831
  3. METOHEXAL [Concomitant]
  4. ANTI-HYPERLIPIDEMIC [Concomitant]

REACTIONS (2)
  - PSYCHOTIC DISORDER [None]
  - SUICIDAL IDEATION [None]
